FAERS Safety Report 21123354 (Version 1)
Quarter: 2022Q3

REPORT INFORMATION
  Report Type: Spontaneous
  Country: IR (occurrence: IR)
  Receive Date: 20220724
  Receipt Date: 20220724
  Transmission Date: 20221026
  Serious: No
  Sender: FDA-Public Use
  Company Number: IR-ALKEM LABORATORIES LIMITED-IR-ALKEM-2022-05060

PATIENT

DRUGS (1)
  1. AZATHIOPRINE [Suspect]
     Active Substance: AZATHIOPRINE
     Indication: Neuromyelitis optica spectrum disorder
     Dosage: 50 MILLIGRAM TWICE DAILY
     Route: 048

REACTIONS (1)
  - Gastrointestinal disorder [Unknown]
